FAERS Safety Report 14197120 (Version 1)
Quarter: 2017Q4

REPORT INFORMATION
  Report Type: Spontaneous
  Country: US (occurrence: US)
  Receive Date: 20171116
  Receipt Date: 20171116
  Transmission Date: 20180321
  Serious: Yes (Other)
  Sender: FDA-Public Use
  Company Number: US-BAUSCH-BL-2017-017909

PATIENT
  Sex: Female

DRUGS (1)
  1. XIFAXAN [Suspect]
     Active Substance: RIFAXIMIN
     Indication: PRODUCT USED FOR UNKNOWN INDICATION
     Route: 065

REACTIONS (11)
  - Asthma [Unknown]
  - Dermatitis exfoliative [Unknown]
  - Gingival swelling [Unknown]
  - Sunburn [Unknown]
  - Urticaria [Unknown]
  - Chromaturia [Unknown]
  - Skin exfoliation [Unknown]
  - Bursitis [Unknown]
  - Flushing [Unknown]
  - Gingival pain [Unknown]
  - Incorrect dose administered [Unknown]
